FAERS Safety Report 9137934 (Version 1)
Quarter: 2013Q1

REPORT INFORMATION
  Report Type: Spontaneous
  Country: US (occurrence: US)
  Receive Date: 20130304
  Receipt Date: 20130304
  Transmission Date: 20140127
  Serious: Yes (Other)
  Sender: FDA-Public Use
  Company Number: CHPA2013US003718

PATIENT
  Age: 74 Year
  Sex: Male

DRUGS (2)
  1. MAALOX ANTACID/ANTIGAS MAX LIQ [Suspect]
     Indication: DYSPEPSIA
     Dosage: UNK, PRN
     Route: 048
     Dates: start: 1983
  2. MAALOX TOTAL RELIEF [Suspect]
     Indication: DYSPEPSIA
     Dosage: UNK, PRN
     Route: 048

REACTIONS (2)
  - Glaucoma [Not Recovered/Not Resolved]
  - Wrong technique in drug usage process [Unknown]
